FAERS Safety Report 6637056-1 (Version None)
Quarter: 2010Q1

REPORT INFORMATION
  Report Type: 
  Country: None (occurrence: None)
  Receive Date: 20100310
  Receipt Date: 20100228
  Transmission Date: 20100710
  Serious: Yes (Other)
  Sender: FDA-Public Use
  Company Number: DSM-2010-00308

PATIENT
  Sex: Male

DRUGS (1)
  1. OLMETEC HCTZ 20/12.5 (HYDROCHLOROTHIAZIDE, OLMESARTAN MEDOXOMIL) [Suspect]
     Indication: HYPERTENSION
     Dosage: 20/12.5 MG, ORAL
     Route: 048

REACTIONS (2)
  - AMYOTROPHIC LATERAL SCLEROSIS [None]
  - CONDITION AGGRAVATED [None]
